FAERS Safety Report 6865761-0 (Version None)
Quarter: 2010Q3

REPORT INFORMATION
  Report Type: 
  Country: None (occurrence: None)
  Receive Date: 20100721
  Receipt Date: 20081120
  Transmission Date: 20110219
  Serious: Yes (Other)
  Sender: FDA-Public Use
  Company Number: US-PFIZER INC-2008037463

PATIENT
  Sex: Male
  Weight: 85.454 kg

DRUGS (15)
  1. CHANTIX [Suspect]
     Indication: SMOKING CESSATION THERAPY
     Route: 048
     Dates: start: 20080329, end: 20080501
  2. PLAVIX [Suspect]
     Indication: ANTICOAGULANT THERAPY
     Dates: start: 20080501, end: 20080101
  3. METHOTREXATE [Concomitant]
  4. SPIRIVA [Concomitant]
  5. NEXIUM [Concomitant]
  6. HYDROCHLOROTHIAZIDE [Concomitant]
  7. FOLIC ACID [Concomitant]
  8. ASPIRIN [Concomitant]
  9. ATENOLOL [Concomitant]
  10. POTASSIUM CHLORIDE [Concomitant]
  11. LIPITOR [Concomitant]
  12. COZAAR [Concomitant]
  13. VITAMIN E [Concomitant]
  14. VITAMIN C [Concomitant]
  15. MULTI-VITAMINS [Concomitant]

REACTIONS (3)
  - ARTERIAL OCCLUSIVE DISEASE [None]
  - CHEST PAIN [None]
  - HYPERSENSITIVITY [None]
